FAERS Safety Report 10261398 (Version 1)
Quarter: 2014Q2

REPORT INFORMATION
  Report Type: Spontaneous
  Country: US (occurrence: US)
  Receive Date: 20140626
  Receipt Date: 20140626
  Transmission Date: 20141212
  Serious: Yes (Other)
  Sender: FDA-Public Use
  Company Number: US-BEH-2014043340

PATIENT
  Age: 24 Year
  Sex: Female

DRUGS (2)
  1. BERINERT [Suspect]
     Indication: ENZYME ABNORMALITY
     Route: 042
     Dates: start: 20140320
  2. FIRAZYR [Concomitant]

REACTIONS (5)
  - Hereditary angioedema [Unknown]
  - Dyspnoea [Unknown]
  - Hereditary angioedema [Unknown]
  - Hereditary angioedema [Unknown]
  - Device related infection [Unknown]
